FAERS Safety Report 14100141 (Version 1)
Quarter: 2017Q4

REPORT INFORMATION
  Report Type: Spontaneous
  Country: CN (occurrence: CN)
  Receive Date: 20171017
  Receipt Date: 20171017
  Transmission Date: 20180321
  Serious: Yes (Hospitalization)
  Sender: FDA-Public Use
  Company Number: PHHY2017CN151279

PATIENT
  Age: 84 Year
  Sex: Female
  Weight: 44 kg

DRUGS (15)
  1. TRIMETAZIDINE [Concomitant]
     Active Substance: TRIMETAZIDINE
     Indication: CEREBRAL INFARCTION
  2. VASOREL [Concomitant]
     Active Substance: TRIMETAZIDINE DIHYDROCHLORIDE
     Indication: ARRHYTHMIA
     Dosage: 0.4 MG, TID
     Route: 048
     Dates: start: 20170712, end: 20170726
  3. ISCHELIUM [Concomitant]
     Indication: HEADACHE
     Dosage: 2.54 MG, BID
     Route: 048
     Dates: start: 20170708, end: 20170725
  4. VERAPAMIL HCL [Concomitant]
     Active Substance: VERAPAMIL HYDROCHLORIDE
     Indication: ESSENTIAL HYPERTENSION
     Dosage: 80 MG, BID
     Route: 048
     Dates: start: 20170714, end: 20170725
  5. VERAPAMIL HCL [Concomitant]
     Active Substance: VERAPAMIL HYDROCHLORIDE
     Indication: CEREBRAL INFARCTION
  6. DIOVAN [Suspect]
     Active Substance: VALSARTAN
     Indication: HYPERTENSION
     Dosage: 80 MG, QD
     Route: 048
     Dates: start: 20170601, end: 20170726
  7. TRIMETAZIDINE [Concomitant]
     Active Substance: TRIMETAZIDINE
     Indication: ESSENTIAL HYPERTENSION
  8. CLOPIDOGREL SULFATE [Concomitant]
     Active Substance: CLOPIDOGREL BISULFATE
     Indication: THROMBOSIS
     Dosage: 50 MG, QD
     Route: 048
     Dates: start: 20170712, end: 20170726
  9. VERAPAMIL HCL [Concomitant]
     Active Substance: VERAPAMIL HYDROCHLORIDE
     Indication: ARRHYTHMIA
  10. ALPRAZOLAM. [Concomitant]
     Active Substance: ALPRAZOLAM
     Indication: INSOMNIA
     Dosage: 0.4 MG, QD
     Route: 048
     Dates: start: 20170715, end: 20170725
  11. VASOREL [Concomitant]
     Active Substance: TRIMETAZIDINE DIHYDROCHLORIDE
     Indication: CEREBRAL INFARCTION
  12. VASOREL [Concomitant]
     Active Substance: TRIMETAZIDINE DIHYDROCHLORIDE
     Indication: ESSENTIAL HYPERTENSION
  13. TRIMETAZIDINE [Concomitant]
     Active Substance: TRIMETAZIDINE
     Indication: ARRHYTHMIA
     Dosage: 20 MG, TID
     Route: 048
     Dates: start: 20170712, end: 20170726
  14. SIBELIUN [Concomitant]
     Indication: HYPERTENSION
     Dosage: 5 MG, QD
     Route: 048
     Dates: start: 20170715, end: 20170725
  15. COENZYME Q10 [Concomitant]
     Active Substance: UBIDECARENONE
     Indication: HEADACHE
     Dosage: 10 MG, TID
     Route: 048
     Dates: start: 20170715, end: 20170725

REACTIONS (4)
  - Oedema peripheral [Recovered/Resolved]
  - Palatal swelling [Recovered/Resolved]
  - Pharyngeal oedema [Recovered/Resolved]
  - Rash [Recovered/Resolved]

NARRATIVE: CASE EVENT DATE: 20170725
